FAERS Safety Report 5919643-9 (Version None)
Quarter: 2008Q4

REPORT INFORMATION
  Report Type: 
  Country: None (occurrence: None)
  Receive Date: 20081015
  Receipt Date: 20081009
  Transmission Date: 20090506
  Serious: Yes (Other)
  Sender: FDA-Public Use
  Company Number: TR-ROCHE-591254

PATIENT
  Age: 9 Year
  Sex: Male

DRUGS (2)
  1. CLONAZEPAM [Suspect]
     Indication: BLEPHAROSPASM
     Route: 065
  2. CLONAZEPAM [Suspect]
     Dosage: DOSAGE REDUCED OVER 3 DAYS AND STOPPED
     Route: 065

REACTIONS (3)
  - DISINHIBITION [None]
  - INTENTIONAL SELF-INJURY [None]
  - SUICIDAL IDEATION [None]
